FAERS Safety Report 9936703 (Version 2)
Quarter: 2014Q1

REPORT INFORMATION
  Report Type: Report from Study
  Country: NL (occurrence: NL)
  Receive Date: 20140228
  Receipt Date: 20140326
  Transmission Date: 20141002
  Serious: Yes (Other)
  Sender: FDA-Public Use
  Company Number: NL-EXELIXIS-XL18414004043

PATIENT
  Age: 71 Year
  Sex: Male
  Weight: 88 kg

DRUGS (8)
  1. XL184 [Suspect]
     Indication: PROSTATE CANCER
     Dosage: 60 MG, QD
     Route: 048
     Dates: start: 20130926, end: 20140213
  2. XL184 [Suspect]
     Indication: PROSTATE CANCER
     Dosage: 5 MG, BID
     Route: 048
     Dates: start: 20130926, end: 20140213
  3. CALCICHEW [Concomitant]
  4. INSULATARD [Concomitant]
  5. ZOMETA [Concomitant]
  6. OMEPRAZOL [Concomitant]
  7. PREDNISOLON [Concomitant]
  8. FRAXODI [Concomitant]

REACTIONS (1)
  - Myocardial infarction [Recovering/Resolving]
